FAERS Safety Report 19672421 (Version 3)
Quarter: 2021Q3

REPORT INFORMATION
  Report Type: Spontaneous
  Country: JP (occurrence: JP)
  Receive Date: 20210808
  Receipt Date: 20210904
  Transmission Date: 20211014
  Serious: Yes (Other)
  Sender: FDA-Public Use
  Company Number: JP-SUN PHARMACEUTICAL INDUSTRIES LTD-2021RR-306739

PATIENT
  Age: 56 Year
  Sex: Male

DRUGS (1)
  1. GEMCITABINE SANDOZ (A NOVARTIS DIVISION) [Suspect]
     Active Substance: GEMCITABINE HYDROCHLORIDE
     Indication: CHOLANGIOCARCINOMA
     Dosage: 1000 MILLIGRAM/SQ. METER, 3 TIMES/CYCLE
     Route: 065

REACTIONS (5)
  - Anaemia [Unknown]
  - Hypotension [Unknown]
  - Malaise [Unknown]
  - Disease progression [Unknown]
  - Thrombocytopenia [Unknown]
